FAERS Safety Report 7183934-7 (Version None)
Quarter: 2010Q4

REPORT INFORMATION
  Report Type: 
  Country: None (occurrence: None)
  Receive Date: 20101222
  Receipt Date: 20101211
  Transmission Date: 20110411
  Serious: Yes (Other)
  Sender: FDA-Public Use
  Company Number: US-BRISTOL-MYERS SQUIBB COMPANY-15422587

PATIENT
  Age: 69 Year
  Sex: Female

DRUGS (1)
  1. COUMADIN [Suspect]
     Indication: ATRIAL FIBRILLATION
     Dosage: 1DF=2.5MG(BLISTER 100 US 0056-0176-75)+5MG(BLISTER 10X10 US 0056-0172-75)
     Route: 048
     Dates: start: 20101130

REACTIONS (1)
  - INTERNATIONAL NORMALISED RATIO ABNORMAL [None]
